FAERS Safety Report 14739237 (Version 1)
Quarter: 2018Q2

REPORT INFORMATION
  Report Type: Spontaneous
  Country: FR (occurrence: FR)
  Receive Date: 20180410
  Receipt Date: 20180410
  Transmission Date: 20180711
  Serious: Yes (Hospitalization)
  Sender: FDA-Public Use
  Company Number: FR-CONCORDIA PHARMACEUTICALS INC.-E2B_00010929

PATIENT
  Age: 70 Year
  Sex: Male
  Weight: 89.2 kg

DRUGS (15)
  1. VASTEN 40 MG, COMPRIM? [Concomitant]
  2. EUCREAS 50 MG/1000 MG, COMPRIM? PELLICUL? [Concomitant]
  3. XARELTO [Concomitant]
     Active Substance: RIVAROXABAN
  4. LASILIX 40 MG, COMPRIM? S?CABLE [Concomitant]
     Active Substance: FUROSEMIDE
  5. ZYLORIC 100 MG, COMPRIME [Concomitant]
  6. UVEDOSE 100 000 UI, SOLUTION BUVABLE EN AMPOULE [Concomitant]
     Active Substance: CHOLECALCIFEROL
  7. METFORMINE [Concomitant]
     Active Substance: METFORMIN HYDROCHLORIDE
  8. PREDNISOLONE. [Suspect]
     Active Substance: PREDNISOLONE
     Indication: ACUTE RESPIRATORY DISTRESS SYNDROME
     Dates: start: 201710, end: 201710
  9. DIFFU K, GELULE [Concomitant]
     Active Substance: POTASSIUM CHLORIDE
  10. PHYSIOTENS 0,4 MG, COMPRIM? PELLICUL? [Concomitant]
  11. BIPRETERAX 10 MG/2,5 MG, COMPRIM? PELLICUL? [Concomitant]
  12. PREDNISOLONE. [Suspect]
     Active Substance: PREDNISOLONE
     Indication: ACUTE RESPIRATORY DISTRESS SYNDROME
     Route: 048
     Dates: start: 2017, end: 2017
  13. DIAMICRON 60 MG, COMPRIM? S?CABLE ? LIB?RATION MODIFI?E [Concomitant]
     Active Substance: GLICLAZIDE
  14. INIPOMP 40 MG, COMPRIM? GASTRO-R?SISTANT [Concomitant]
  15. MONO TILDIEM LP 200 MG, G?LULE ? LIB?RATION PROLONG?E [Concomitant]

REACTIONS (1)
  - Diabetes mellitus inadequate control [Recovered/Resolved]

NARRATIVE: CASE EVENT DATE: 201710
